FAERS Safety Report 25351610 (Version 1)
Quarter: 2025Q2

REPORT INFORMATION
  Report Type: Spontaneous
  Country: US (occurrence: US)
  Receive Date: 20250523
  Receipt Date: 20250523
  Transmission Date: 20250716
  Serious: Yes (Other)
  Sender: DR REDDYS
  Company Number: None

PATIENT
  Age: 72 Year
  Sex: Male

DRUGS (5)
  1. DOCETAXEL [Suspect]
     Active Substance: DOCETAXEL
     Indication: Hepatic angiosarcoma
  2. DOCETAXEL [Suspect]
     Active Substance: DOCETAXEL
     Indication: Metastases to lung
  3. DOCETAXEL [Suspect]
     Active Substance: DOCETAXEL
     Indication: Metastases to adrenals
  4. TACROLIMUS [Concomitant]
     Active Substance: TACROLIMUS
     Indication: Immunosuppressant drug therapy
     Dosage: TACROLIMUS DOSE ADJUSTMENTS WERE MADE, LOW-DOSE
  5. EVEROLIMUS [Concomitant]
     Active Substance: EVEROLIMUS
     Indication: Immunosuppressant drug therapy
     Dosage: WITH TARGET TROUGH LEVEL 3-7

REACTIONS (3)
  - Renal impairment [Unknown]
  - Urinary incontinence [Unknown]
  - Asthenia [Unknown]
